FAERS Safety Report 5094117-9 (Version None)
Quarter: 2006Q3

REPORT INFORMATION
  Report Type: 
  Country: None (occurrence: None)
  Receive Date: 20060831
  Receipt Date: 20060824
  Transmission Date: 20061208
  Serious: Yes (Life-Threatening)
  Sender: FDA-Public Use
  Company Number: JP-MERCK-0608USA06379

PATIENT
  Age: 76 Year
  Sex: Male

DRUGS (10)
  1. PROPECIA [Suspect]
     Indication: ALOPECIA
     Route: 048
     Dates: start: 20060728
  2. [THERAPY UNSPECIFIED] [Concomitant]
     Indication: CHEMICAL POISONING
     Route: 065
     Dates: start: 20050701
  3. PERSANTIN [Concomitant]
     Indication: ANGINA PECTORIS
     Route: 065
  4. PERSANTIN [Concomitant]
     Indication: HEART RATE IRREGULAR
     Route: 065
  5. AMLODIN [Concomitant]
     Indication: ANGINA PECTORIS
     Route: 048
     Dates: start: 20050701
  6. AMLODIN [Concomitant]
     Indication: HYPERTONIA
     Route: 048
     Dates: start: 20050701
  7. 8-HOUR BAYER [Concomitant]
     Indication: ANGINA PECTORIS
     Route: 048
     Dates: start: 20050701
  8. 8-HOUR BAYER [Concomitant]
     Indication: HEART RATE IRREGULAR
     Route: 048
     Dates: start: 20050701
  9. MEILAX [Concomitant]
     Indication: ANXIETY
     Route: 048
     Dates: start: 20050701
  10. UBIDECARENONE [Concomitant]
     Indication: CARDIAC FAILURE
     Route: 048
     Dates: start: 20050701

REACTIONS (1)
  - ACUTE LEUKAEMIA [None]
